FAERS Safety Report 25828989 (Version 1)
Quarter: 2025Q3

REPORT INFORMATION
  Report Type: Spontaneous
  Country: US (occurrence: US)
  Receive Date: 20250922
  Receipt Date: 20250922
  Transmission Date: 20251021
  Serious: Yes (Hospitalization)
  Sender: MERCK SHARP & DOHME LLC
  Company Number: US-BNTAG-10000467

PATIENT
  Age: 57 Year
  Sex: Male
  Weight: 59.7 kg

DRUGS (7)
  1. KEYTRUDA [Suspect]
     Active Substance: PEMBROLIZUMAB
     Indication: Squamous cell carcinoma of head and neck
     Dosage: DOSE DESCRIPTION : X 200 MILLIGRAM IN 3 WEEK?DAILY DOSE : 9.4 MILLIGRAM?REGIMEN DOSE : 2000  MILL...
     Route: 042
     Dates: start: 20220324, end: 20221020
  2. FAMOTIDINE [Concomitant]
     Active Substance: FAMOTIDINE
     Indication: Prophylaxis
     Dosage: DOSE DESCRIPTION : 20 MG, EVERY 1 DAYS?DAILY DOSE : 20 MILLIGRAM
     Route: 048
     Dates: start: 20220324
  3. SODIUM CHLORIDE [Concomitant]
     Active Substance: SODIUM CHLORIDE
     Route: 042
  4. CHOLECALCIFEROL [Concomitant]
     Active Substance: CHOLECALCIFEROL
     Dosage: DOSE DESCRIPTION : X 1000 IU (INTERNATIONAL UNIT) IN 1 DAY?DAILY DOSE : 1000 INTERNATIONAL UNIT
  5. LANSOPRAZOLE [Concomitant]
     Active Substance: LANSOPRAZOLE
     Dosage: DOSE DESCRIPTION : 30 MG, EVERY 1 DAYS?DAILY DOSE : 30 MILLIGRAM
  6. LEVOTHYROXINE [Concomitant]
     Active Substance: LEVOTHYROXINE
     Dosage: DOSE DESCRIPTION : X 137 MICROGRAM IN 1 DAY?DAILY DOSE : 137 MICROGRAM
  7. SERTRALINE [Concomitant]
     Active Substance: SERTRALINE HYDROCHLORIDE
     Dosage: DOSE DESCRIPTION : X 50 MILLIGRAM IN 1 DAY?DAILY DOSE : 50 MILLIGRAM

REACTIONS (3)
  - Pancreatitis acute [Recovered/Resolved]
  - Duodenitis [Not Recovered/Not Resolved]
  - Abdominal pain upper [Recovered/Resolved]

NARRATIVE: CASE EVENT DATE: 20221014
